FAERS Safety Report 18742364 (Version 1)
Quarter: 2021Q1

REPORT INFORMATION
  Report Type: Spontaneous
  Country: US (occurrence: US)
  Receive Date: 20210114
  Receipt Date: 20210114
  Transmission Date: 20210419
  Serious: Yes (Hospitalization)
  Sender: FDA-Public Use
  Company Number: US-FRESENIUS MEDICAL CARE RENAL THERAPIES GROUP-FMC-2101-000048

PATIENT
  Age: 64 Year
  Sex: Male
  Weight: 80 kg

DRUGS (3)
  1. DELFLEX WITH DEXTROSE 1.5% LOW MAGNESIUM LOW CALCIUM [Suspect]
     Active Substance: CALCIUM CHLORIDE\DEXTROSE\MAGNESIUM CHLORIDE\SODIUM CHLORIDE\SODIUM LACTATE
     Indication: END STAGE RENAL DISEASE
     Dosage: FILL VOLUME 2400 ML, FILLS 4, LAST FILL 100 ML, DAYTIME EXCHANGE 0, DWELL TIME 1.5 HOURS, SINCE 01NO
     Route: 033
     Dates: start: 20191101
  2. DELFLEX WITH DEXTROSE 2.5% LOW MAGNESIUM LOW CALCIUM [Suspect]
     Active Substance: CALCIUM CHLORIDE\DEXTROSE\MAGNESIUM CHLORIDE\SODIUM CHLORIDE\SODIUM LACTATE
     Indication: END STAGE RENAL DISEASE
     Dosage: FILL VOLUME 2400 ML, FILLS 4, LAST FILL 100 ML, DAYTIME EXCHANGE 0, DWELL TIME 1.5 HOURS, SINCE 01NO
     Route: 033
     Dates: start: 20191101
  3. DELFLEX WITH DEXTROSE 4.25% LOW MAGNESIUM LOW CALCIUM [Suspect]
     Active Substance: CALCIUM CHLORIDE\DEXTROSE\MAGNESIUM CHLORIDE\SODIUM CHLORIDE\SODIUM LACTATE
     Indication: END STAGE RENAL DISEASE
     Dosage: FILL VOLUME 2400 ML, FILLS 4, LAST FILL 100 ML, DAYTIME EXCHANGE 0, DWELL TIME 1.5 HOURS, SINCE 01NO
     Route: 033
     Dates: start: 20191101

REACTIONS (2)
  - Azotaemia [Unknown]
  - Treatment noncompliance [Unknown]
